FAERS Safety Report 4952404-6 (Version None)
Quarter: 2006Q1

REPORT INFORMATION
  Report Type: 
  Country: None (occurrence: None)
  Receive Date: 20060320
  Receipt Date: 20060308
  Transmission Date: 20060701
  Serious: Yes (Hospitalization, Other)
  Sender: FDA-Public Use
  Company Number: HQWYE821504AUG04

PATIENT
  Age: 51 Year
  Sex: Female
  Weight: 63.11 kg

DRUGS (1)
  1. PREMPRO [Suspect]
     Indication: HORMONE REPLACEMENT THERAPY
     Dosage: 0.625 MG/2.5MG
     Dates: start: 20000310, end: 20010601

REACTIONS (1)
  - BREAST CANCER METASTATIC [None]
